FAERS Safety Report 11544954 (Version 1)
Quarter: 2015Q3

REPORT INFORMATION
  Report Type: Report from Study
  Country: US (occurrence: US)
  Receive Date: 20150924
  Receipt Date: 20150924
  Transmission Date: 20151125
  Serious: Yes (Other)
  Sender: FDA-Public Use
  Company Number: US-009507513-1509USA010940

PATIENT
  Age: 33 Year
  Sex: Female
  Weight: 63.95 kg

DRUGS (7)
  1. NUVARING [Suspect]
     Active Substance: ETHINYL ESTRADIOL\ETONOGESTREL
     Indication: CONTRACEPTION
     Dosage: UNK, UNKNOWN
     Route: 065
  2. NUVIGIL [Suspect]
     Active Substance: ARMODAFINIL
     Indication: FATIGUE
     Dosage: 250 MG, UNKNOWN
     Route: 065
     Dates: start: 2010, end: 20150720
  3. AMBIEN [Concomitant]
     Active Substance: ZOLPIDEM TARTRATE
     Indication: SOMNOLENCE
     Dosage: 5 MG, QD, AT NIGHT
     Dates: start: 2010
  4. MINERALS (UNSPECIFIED) (+) OMEGA-3 MARINE TRIGLYCERIDES (+) VITAMINS ( [Concomitant]
  5. TECFIDERA [Concomitant]
     Active Substance: DIMETHYL FUMARATE
     Indication: MULTIPLE SCLEROSIS
     Dosage: 240 MG, BID
     Dates: start: 201503, end: 20150628
  6. MINERALS (UNSPECIFIED) (+) VITAMINS (UNSPECIFIED) [Concomitant]
     Dosage: UNK
     Dates: start: 20150628
  7. PRISTIQ EXTENDED RELEASE [Concomitant]
     Active Substance: DESVENLAFAXINE SUCCINATE
     Indication: ANXIETY
     Dosage: 100 MG, QD, AT NIGHT
     Dates: start: 2010

REACTIONS (4)
  - Exposure during pregnancy [Unknown]
  - Unintended pregnancy [Unknown]
  - Pregnancy on contraceptive [Unknown]
  - Product use issue [Unknown]

NARRATIVE: CASE EVENT DATE: 20150605
